FAERS Safety Report 25120479 (Version 1)
Quarter: 2025Q1

REPORT INFORMATION
  Report Type: Spontaneous
  Country: CN (occurrence: CN)
  Receive Date: 20250325
  Receipt Date: 20250325
  Transmission Date: 20250408
  Serious: Yes (Hospitalization, Other)
  Sender: DR REDDYS
  Company Number: CN-CHN-CHN/2025/03/004425

PATIENT
  Age: 52 Year
  Sex: Female

DRUGS (15)
  1. OLANZAPINE [Suspect]
     Active Substance: OLANZAPINE
     Indication: Schizophrenia
     Dosage: RECOMMENDED MAXIMUM DOSE 20 MG/DAY
  2. ZIPRASIDONE [Concomitant]
     Active Substance: ZIPRASIDONE
     Indication: Schizophrenia
     Dosage: RECOMMENDED MAXIMUM DOSE 160 MG/DAY
  3. RISPERIDONE [Concomitant]
     Active Substance: RISPERIDONE
     Indication: Schizophrenia
     Dosage: RECOMMENDED MAXIMUM DOSE 16 MG/DAY
  4. ARIPIPRAZOLE [Concomitant]
     Active Substance: ARIPIPRAZOLE
     Indication: Schizophrenia
     Dosage: RECOMMENDED MAXIMUM DOSE 30 MG/DAY
  5. SULPIRIDE [Concomitant]
     Active Substance: SULPIRIDE
     Indication: Schizophrenia
     Dosage: RECOMMENDED MAXIMUM DOSE 600 MG/DAY
  6. CLOZAPINE [Concomitant]
     Active Substance: CLOZAPINE
     Indication: Schizophrenia
     Dosage: RECOMMENDED MAXIMUM DOSE 600 MG/DAY
  7. TRIHEXYPHENIDYL [Concomitant]
     Active Substance: TRIHEXYPHENIDYL
     Indication: Schizophrenia
     Dosage: RECOMMENDED MAXIMUM DOSE 20 MG/DAY
  8. ORYZANOL [Concomitant]
     Active Substance: GAMMA ORYZANOL
     Indication: Schizophrenia
     Dosage: RECOMMENDED MAXIMUM DOSE 90 MG/DAY
  9. Jiang Zhi Ning [Concomitant]
     Indication: Schizophrenia
     Dosage: RECOMMENDED MAXIMUM DOSE 6000 MG/DAY
  10. PROPRANOLOL [Concomitant]
     Active Substance: PROPRANOLOL HYDROCHLORIDE
     Indication: Schizophrenia
     Dosage: RECOMMENDED MAXIMUM DOSE 200 MG/DAY
  11. INOSINE [Concomitant]
     Active Substance: INOSINE
     Indication: Schizophrenia
     Dosage: RECOMMENDED MAXIMUM DOSE 1800 MG/DAY
  12. ADENOSINE TRIPHOSPHATE DISODIUM [Concomitant]
     Active Substance: ADENOSINE TRIPHOSPHATE DISODIUM
     Indication: Schizophrenia
     Dosage: RECOMMENDED MAXIMUM DOSE 120 MG/DAY
  13. Dan Shen [Concomitant]
     Indication: Schizophrenia
     Dosage: RECOMMENDED MAXIMUM DOSE 2880 MG/DAY
  14. Yi Xin Tong [Concomitant]
     Indication: Schizophrenia
     Dosage: RECOMMENDED MAXIMUM DOSE 2250 MG/DAY
  15. Bian Tong [Concomitant]
     Indication: Schizophrenia
     Dosage: RECOMMENDED MAXIMUM DOSE 2760 MG/DAY

REACTIONS (8)
  - Intentional overdose [Unknown]
  - Toxicity to various agents [Unknown]
  - Self-medication [Unknown]
  - Attention deficit hyperactivity disorder [Unknown]
  - Delusion of reference [Unknown]
  - Memory impairment [Unknown]
  - Salivary hypersecretion [Unknown]
  - Jealous delusion [Unknown]
